FAERS Safety Report 6760565-1 (Version None)
Quarter: 2010Q2

REPORT INFORMATION
  Report Type: 
  Country: None (occurrence: None)
  Receive Date: 20100608
  Receipt Date: 20100526
  Transmission Date: 20101027
  Serious: Yes (Hospitalization, Other)
  Sender: FDA-Public Use
  Company Number: US-PFIZER INC-2010067062

PATIENT
  Sex: Female
  Weight: 77.098 kg

DRUGS (5)
  1. NEURONTIN [Suspect]
     Indication: PAIN
     Dosage: 400 MG, 1X/DAY
     Route: 048
  2. LYRICA [Suspect]
     Indication: PAIN
     Dosage: 50 MG, DAILY
     Route: 048
     Dates: start: 20100501, end: 20100501
  3. PERCOCET [Concomitant]
     Dosage: 525 MG, EVERY 4 TO 6 HOURS DAILY
  4. MORPHINE [Concomitant]
     Dosage: 30 MG, UNK
  5. LOPRESSOR [Concomitant]
     Indication: HYPERTENSION
     Dosage: UNK

REACTIONS (4)
  - GRAVITATIONAL OEDEMA [None]
  - OEDEMA PERIPHERAL [None]
  - SCAR [None]
  - WALKING AID USER [None]
